FAERS Safety Report 7331664-0 (Version None)
Quarter: 2011Q1

REPORT INFORMATION
  Report Type: 
  Country: None (occurrence: None)
  Receive Date: 20110304
  Receipt Date: 20110228
  Transmission Date: 20110831
  Serious: Yes (Death, Hospitalization)
  Sender: FDA-Public Use
  Company Number: CN-SANOFI-AVENTIS-2011SA005825

PATIENT
  Sex: Female

DRUGS (3)
  1. PRAVASTATIN [Concomitant]
     Route: 048
     Dates: start: 20100701
  2. CLOPIDOGREL BISULFATE [Suspect]
     Indication: ACUTE CORONARY SYNDROME
     Dosage: THERAPY STATUS AT THE TIME OF PATIENT'S DEATH WAS NOT SPECIFIED.
     Route: 048
     Dates: start: 20100701
  3. ISOSORBIDE MONONITRATE [Concomitant]
     Route: 048
     Dates: start: 20100701

REACTIONS (16)
  - ASTHENIA [None]
  - SEPTIC SHOCK [None]
  - PLATELET COUNT DECREASED [None]
  - DIARRHOEA [None]
  - GASTROINTESTINAL INFECTION [None]
  - SOFT TISSUE INFECTION [None]
  - PANCYTOPENIA [None]
  - APLASTIC ANAEMIA [None]
  - WHITE BLOOD CELL COUNT DECREASED [None]
  - NAUSEA [None]
  - ABDOMINAL PAIN LOWER [None]
  - SKIN SWELLING [None]
  - ABDOMINAL TENDERNESS [None]
  - VOMITING [None]
  - ERYTHEMA [None]
  - PAIN [None]
